FAERS Safety Report 8715915 (Version 3)
Quarter: 2013Q1

REPORT INFORMATION
  Report Type: Spontaneous
  Country: DK (occurrence: None)
  Receive Date: 20120725
  Receipt Date: 20121231
  Transmission Date: 20140127
  Serious: Yes (Hospitalization, Other)
  Sender: FDA-Public Use
  Company Number: 2012MA008881

PATIENT
  Age: 69 Year
  Sex: Female

DRUGS (13)
  1. METOCLOPRAMIDE HYDROCHLORIDE [Suspect]
     Indication: PRODUCT USED FOR UNKNOWN INDICATION
     Dates: start: 20080806, end: 201109
  2. MIRTAZAPINE [Suspect]
     Indication: PRODUCT USED FOR UNKNOWN INDICATION
     Dosage: 30 MG;QD
  3. LORAZEPAM [Suspect]
     Indication: PRODUCT USED FOR UNKNOWN INDICATION
     Dosage: 1 MG;TID
     Route: 048
     Dates: start: 20120329, end: 20120523
  4. PROPRANOLOL HYDROCHLORIDE [Suspect]
     Indication: PRODUCT USED FOR UNKNOWN INDICATION
     Dosage: 10 MG;Q4H
     Route: 048
     Dates: start: 20120501
  5. PAROXETINE HYDROCHLORIDE [Suspect]
     Indication: DEPRESSION
     Dosage: 20 MG;BID;PO
     Route: 048
     Dates: start: 19970707, end: 20111206
  6. TETRABENAZINE [Suspect]
     Indication: PRODUCT USED FOR UNKNOWN INDICATION
     Dosage: 4.5 MG;QD
     Route: 048
     Dates: start: 20111128, end: 20120320
  7. ACRIVASTINE [Concomitant]
  8. FENOFIBRATE [Concomitant]
  9. BENDROFLUMETHIAZIDE [Concomitant]
  10. LANSOPRAZOLE [Concomitant]
  11. RAMIPRIL [Concomitant]
  12. BECONASE AQ [Concomitant]
  13. ATORVASTATIN [Concomitant]

REACTIONS (6)
  - Akathisia [None]
  - Hallucination [None]
  - Dyskinesia [None]
  - Fall [None]
  - Hypophagia [None]
  - Muscle contractions involuntary [None]
